FAERS Safety Report 16022900 (Version 1)
Quarter: 2019Q1

REPORT INFORMATION
  Report Type: Spontaneous
  Country: US (occurrence: US)
  Receive Date: 20190301
  Receipt Date: 20190301
  Transmission Date: 20190418
  Serious: No
  Sender: FDA-Public Use
  Company Number: US-ASTRAZENECA-2019SE19677

PATIENT
  Age: 837 Month
  Sex: Female
  Weight: 81.6 kg

DRUGS (3)
  1. SYMBICORT [Suspect]
     Active Substance: BUDESONIDE\FORMOTEROL FUMARATE DIHYDRATE
     Indication: ASTHMA
     Dosage: 80/4.5 MCG, TWO PUFFS, TWICE DAILY
     Route: 055
     Dates: start: 20190130
  2. PROVENTIL HFA [Concomitant]
     Active Substance: ALBUTEROL SULFATE
     Indication: ASTHMA
     Dosage: AS REQUIRED
     Route: 055
  3. SYMBICORT [Suspect]
     Active Substance: BUDESONIDE\FORMOTEROL FUMARATE DIHYDRATE
     Indication: ASTHMA
     Dosage: 80/4.5 MCG, TWO PUFFS, TWICE DAILY
     Route: 055
     Dates: start: 2008, end: 201801

REACTIONS (4)
  - Intentional product misuse [Unknown]
  - Dyspnoea [Unknown]
  - Nasal congestion [Unknown]
  - Malaise [Unknown]

NARRATIVE: CASE EVENT DATE: 201801
